FAERS Safety Report 11801311 (Version 2)
Quarter: 2015Q4

REPORT INFORMATION
  Report Type: Spontaneous
  Country: KR (occurrence: KR)
  Receive Date: 20151204
  Receipt Date: 20151209
  Transmission Date: 20160305
  Serious: Yes (Other)
  Sender: FDA-Public Use
  Company Number: KR-TAKEDA-2015MPI008137

PATIENT

DRUGS (23)
  1. VELCADE [Suspect]
     Active Substance: BORTEZOMIB
     Dosage: 1.3 MG/M2, UNK
     Route: 058
     Dates: start: 20150309, end: 20150427
  2. PREDNISONE. [Suspect]
     Active Substance: PREDNISONE
     Indication: PLASMA CELL MYELOMA
     Dosage: 7.5 MG/M2, UNK
     Route: 065
     Dates: start: 20141125, end: 20141128
  3. GABAPENTIN. [Suspect]
     Active Substance: GABAPENTIN
     Dosage: 300 MG, BID
     Route: 065
     Dates: start: 20150518, end: 20151012
  4. ETRAVIL [Suspect]
     Active Substance: AMITRIPTYLINE HYDROCHLORIDE
     Indication: PRODUCT USED FOR UNKNOWN INDICATION
     Dosage: 10 MG, QD
     Route: 065
     Dates: start: 20141215, end: 20151109
  5. LAMOTRIGINE. [Suspect]
     Active Substance: LAMOTRIGINE
     Indication: PRODUCT USED FOR UNKNOWN INDICATION
     Dosage: UNK
     Route: 065
     Dates: start: 20151026
  6. ARIPIPRAZOLE. [Suspect]
     Active Substance: ARIPIPRAZOLE
     Indication: PRODUCT USED FOR UNKNOWN INDICATION
     Dosage: 2.5 MG, UNK
     Route: 065
     Dates: start: 20150615
  7. LOPERAMIDE [Concomitant]
     Active Substance: LOPERAMIDE
     Dosage: UNK
     Route: 065
  8. GABAPENTIN. [Suspect]
     Active Substance: GABAPENTIN
     Indication: PRODUCT USED FOR UNKNOWN INDICATION
     Dosage: 100 MG, TID
     Route: 065
     Dates: start: 20150504
  9. VELCADE [Suspect]
     Active Substance: BORTEZOMIB
     Dosage: 1.3 MG/M2, UNK
     Route: 058
     Dates: start: 20150907, end: 20151005
  10. TRAMADOL. [Suspect]
     Active Substance: TRAMADOL
     Indication: PRODUCT USED FOR UNKNOWN INDICATION
     Dosage: 150 MG, UNK
     Route: 065
     Dates: start: 20150713, end: 20150720
  11. MELPHALAN [Suspect]
     Active Substance: MELPHALAN
     Indication: PLASMA CELL MYELOMA
     Dosage: 60 MG/M2, UNK
     Route: 065
     Dates: start: 20141125, end: 20141128
  12. PREGABALIN. [Suspect]
     Active Substance: PREGABALIN
     Indication: PRODUCT USED FOR UNKNOWN INDICATION
     Dosage: 75 MG, QD
     Route: 065
     Dates: start: 20141128, end: 20141215
  13. MORPHINE [Suspect]
     Active Substance: MORPHINE
     Indication: PRODUCT USED FOR UNKNOWN INDICATION
     Dosage: 5 MG, UNK
     Route: 065
     Dates: start: 20141206
  14. VELCADE [Suspect]
     Active Substance: BORTEZOMIB
     Indication: PLASMA CELL MYELOMA
     Dosage: 1.3 MG/M2, UNK
     Route: 058
     Dates: start: 20141125, end: 20150105
  15. ESCITALOPRAM [Suspect]
     Active Substance: ESCITALOPRAM OXALATE
     Indication: PRODUCT USED FOR UNKNOWN INDICATION
     Dosage: 2.5 MG, UNK
     Route: 065
     Dates: start: 20150629, end: 20150914
  16. VELCADE [Suspect]
     Active Substance: BORTEZOMIB
     Dosage: 1.3 MG/M2, UNK
     Route: 058
     Dates: start: 20150504, end: 20150720
  17. VELCADE [Suspect]
     Active Substance: BORTEZOMIB
     Dosage: 1.3 MG/M2, UNK
     Route: 058
     Dates: start: 20150727, end: 20150831
  18. ESCITALOPRAM [Suspect]
     Active Substance: ESCITALOPRAM OXALATE
     Dosage: 5 MG, UNK
     Route: 065
     Dates: start: 20150921, end: 20151109
  19. VELCADE [Suspect]
     Active Substance: BORTEZOMIB
     Dosage: 1.3 MG/M2, UNK
     Route: 058
     Dates: start: 20150112, end: 20150302
  20. VELCADE [Suspect]
     Active Substance: BORTEZOMIB
     Dosage: 1.3 MG/M2, UNK
     Route: 058
     Dates: start: 20151012, end: 20151109
  21. RISPERIDONE. [Suspect]
     Active Substance: RISPERIDONE
     Indication: PRODUCT USED FOR UNKNOWN INDICATION
     Dosage: 0.25 MG, UNK
     Route: 065
     Dates: start: 20150608, end: 20150615
  22. RISPERIDONE. [Suspect]
     Active Substance: RISPERIDONE
     Dosage: 0.5 MG, UNK
     Route: 065
     Dates: start: 20150622, end: 20150914
  23. PREGABALIN. [Suspect]
     Active Substance: PREGABALIN
     Dosage: 150 MG, QD
     Route: 065
     Dates: start: 20141222, end: 20151012

REACTIONS (4)
  - Pneumonia [Unknown]
  - Tremor [Unknown]
  - Delirium [Unknown]
  - Asthenia [Unknown]

NARRATIVE: CASE EVENT DATE: 20150608
